FAERS Safety Report 4856930-X (Version None)
Quarter: 2005Q4

REPORT INFORMATION
  Report Type: 
  Country: None (occurrence: None)
  Receive Date: 20051219
  Receipt Date: 20041130
  Transmission Date: 20060501
  Serious: No
  Sender: FDA-Public Use
  Company Number: US-GLAXOSMITHKLINE-A0535508A

PATIENT
  Age: 81 Year
  Sex: Male

DRUGS (1)
  1. NICODERM CQ [Suspect]
     Dates: start: 20041128, end: 20041128

REACTIONS (4)
  - BALANCE DISORDER [None]
  - FALL [None]
  - HYPOTONIA [None]
  - TREMOR [None]
